FAERS Safety Report 4415148-5 (Version None)
Quarter: 2004Q3

REPORT INFORMATION
  Report Type: 
  Country: None (occurrence: None)
  Receive Date: 20040730
  Receipt Date: 20040709
  Transmission Date: 20050211
  Serious: Yes (Other)
  Sender: FDA-Public Use
  Company Number: 2004AP000575

PATIENT
  Age: 52 Year
  Sex: Female

DRUGS (5)
  1. PAROXETINE HYDROCHLORIDE [Suspect]
     Indication: DEPRESSIVE SYMPTOM
     Dosage: ORAL
     Route: 048
  2. PAPAVERINE [Suspect]
  3. BUSPIRONE [Suspect]
  4. BUSPIRONE [Concomitant]
  5. PAPAVERINE [Concomitant]

REACTIONS (8)
  - CHILLS [None]
  - DRUG INTERACTION [None]
  - ECCHYMOSIS [None]
  - HYPERREFLEXIA [None]
  - PYREXIA [None]
  - TACHYCARDIA [None]
  - THROAT TIGHTNESS [None]
  - TREMOR [None]
